FAERS Safety Report 20769009 (Version 1)
Quarter: 2022Q2

REPORT INFORMATION
  Report Type: Spontaneous
  Country: CN (occurrence: CN)
  Receive Date: 20220429
  Receipt Date: 20220429
  Transmission Date: 20220721
  Serious: Yes (Disabling)
  Sender: FDA-Public Use
  Company Number: CN-ABBVIE-22K-035-4373818-00

PATIENT
  Age: 49 Year
  Sex: Female
  Weight: 54 kg

DRUGS (7)
  1. LOPINAVIR\RITONAVIR [Suspect]
     Active Substance: LOPINAVIR\RITONAVIR
     Indication: Acquired immunodeficiency syndrome
     Route: 048
     Dates: start: 20170914, end: 20220417
  2. LAMIVUDINE [Suspect]
     Active Substance: LAMIVUDINE
     Indication: Acquired immunodeficiency syndrome
     Route: 048
     Dates: start: 20170914, end: 20220417
  3. ZIDOVUDINE [Suspect]
     Active Substance: ZIDOVUDINE
     Indication: Acquired immunodeficiency syndrome
     Route: 048
     Dates: start: 20190918, end: 20220417
  4. ELVITEGRAVIR [Concomitant]
     Active Substance: ELVITEGRAVIR
     Indication: Product used for unknown indication
     Dates: start: 202204
  5. COBICISTAT [Concomitant]
     Active Substance: COBICISTAT
     Indication: Product used for unknown indication
     Dates: start: 202204
  6. EMTRICITABINE [Concomitant]
     Active Substance: EMTRICITABINE
     Indication: Product used for unknown indication
     Dates: start: 202204
  7. TENOFOVIR ALAFENAMIDE FUMARATE [Concomitant]
     Active Substance: TENOFOVIR ALAFENAMIDE FUMARATE
     Indication: Product used for unknown indication
     Dates: start: 202204

REACTIONS (1)
  - Renal impairment [Unknown]

NARRATIVE: CASE EVENT DATE: 20220417
